FAERS Safety Report 22173183 (Version 1)
Quarter: 2023Q2

REPORT INFORMATION
  Report Type: Spontaneous
  Country: GB (occurrence: GB)
  Receive Date: 20230404
  Receipt Date: 20230404
  Transmission Date: 20230721
  Serious: Yes (Other)
  Sender: FDA-Public Use
  Company Number: None

PATIENT
  Age: 87 Year
  Sex: Female
  Weight: 82 kg

DRUGS (11)
  1. CLARITHROMYCIN [Suspect]
     Active Substance: CLARITHROMYCIN
     Indication: Limb injury
     Dosage: 500 MILLIGRAM, BID (IF TOLERATED OTHERWISE 1 BD)
     Route: 048
     Dates: start: 20230319
  2. CLINDAMYCIN [Concomitant]
     Active Substance: CLINDAMYCIN
     Dosage: 2 DOSAGE FORM, QID
     Route: 048
     Dates: start: 20230205, end: 20230212
  3. COCODAMOL [Concomitant]
     Active Substance: ACETAMINOPHEN\CODEINE PHOSPHATE
     Dosage: UNK TAKE ONE OR TWO 4 TIMES/DAY
     Route: 065
     Dates: start: 20230204, end: 20230224
  4. CHOLECALCIFEROL [Concomitant]
     Active Substance: CHOLECALCIFEROL
     Dosage: 1 DOSAGE FORM, QD
     Route: 065
     Dates: start: 20220714
  5. CYCLIZINE [Concomitant]
     Active Substance: CYCLIZINE
     Indication: Nausea
     Dosage: UNK UNK, QD (1 OR 2 A DAY)
     Route: 065
     Dates: start: 20230319
  6. DIGOXIN [Concomitant]
     Active Substance: DIGOXIN
     Dosage: 1 DOSAGE FORM, QD
     Route: 065
     Dates: start: 20220714
  7. BIMATOPROST\TIMOLOL [Concomitant]
     Active Substance: BIMATOPROST\TIMOLOL
     Dosage: 1 GTT DROPS, QD
     Route: 031
     Dates: start: 20221031
  8. LOSARTAN [Concomitant]
     Active Substance: LOSARTAN
     Dosage: 75 MILLIGRAM, QD
     Route: 065
     Dates: start: 20220714
  9. MOMETASONE [Concomitant]
     Active Substance: MOMETASONE
     Dosage: 1 DOSAGE FORM, QD
     Route: 062
     Dates: start: 20230202, end: 20230302
  10. NEBIVOLOL [Concomitant]
     Active Substance: NEBIVOLOL
     Dosage: 0.5 DOSAGE FORM, QD
     Route: 048
     Dates: start: 20220725
  11. RIVAROXABAN [Concomitant]
     Active Substance: RIVAROXABAN
     Dosage: 1 DOSAGE FORM, QD
     Route: 065
     Dates: start: 20220718

REACTIONS (1)
  - Dyspnoea [Recovered/Resolved]
